FAERS Safety Report 13570902 (Version 1)
Quarter: 2017Q2

REPORT INFORMATION
  Report Type: Other
  Country: US (occurrence: US)
  Receive Date: 20170523
  Receipt Date: 20170523
  Transmission Date: 20170830
  Serious: Yes (Life-Threatening, Other)
  Sender: FDA-Public Use
  Company Number: US-HETERO LABS LTD-2021078

PATIENT
  Age: 30 Year
  Sex: Male

DRUGS (7)
  1. ETOPOSIDE. [Suspect]
     Active Substance: ETOPOSIDE
     Route: 065
  2. DARUNAVIR [Suspect]
     Active Substance: DARUNAVIR
     Route: 065
  3. RITONAVIR. [Suspect]
     Active Substance: RITONAVIR
     Route: 065
  4. METHOTREXATE SODIUM. [Suspect]
     Active Substance: METHOTREXATE SODIUM
     Route: 065
  5. ABACAVIR. [Suspect]
     Active Substance: ABACAVIR
     Indication: HIV INFECTION
     Route: 065
  6. TEMOZOLOMIDE. [Suspect]
     Active Substance: TEMOZOLOMIDE
     Route: 065
  7. ARA-C [Suspect]
     Active Substance: CYTARABINE
     Route: 065

REACTIONS (1)
  - Thrombocytopenia [Unknown]
